FAERS Safety Report 9351307 (Version 1)
Quarter: 2013Q2

REPORT INFORMATION
  Report Type: Spontaneous
  Country: GB (occurrence: GB)
  Receive Date: 20130617
  Receipt Date: 20130617
  Transmission Date: 20140414
  Serious: Yes (Other)
  Sender: FDA-Public Use
  Company Number: PHHY2013GB059421

PATIENT
  Sex: 0

DRUGS (2)
  1. BECLOMETHASONE [Suspect]
     Indication: ASTHMA
  2. SALBUTAMOL [Suspect]
     Indication: ASTHMA

REACTIONS (2)
  - Chronic obstructive pulmonary disease [Unknown]
  - Drug ineffective [Unknown]
